FAERS Safety Report 20355950 (Version 1)
Quarter: 2022Q1

REPORT INFORMATION
  Report Type: Report from Study
  Country: DE (occurrence: DE)
  Receive Date: 20220120
  Receipt Date: 20220120
  Transmission Date: 20220423
  Serious: Yes (Other)
  Sender: FDA-Public Use
  Company Number: DE-TEVA-2022-DE-1998978

PATIENT
  Age: 1 Decade
  Sex: Female

DRUGS (6)
  1. LAMOTRIGINE [Suspect]
     Active Substance: LAMOTRIGINE
     Indication: Epilepsy
     Route: 065
  2. LAMOTRIGINE [Suspect]
     Active Substance: LAMOTRIGINE
     Indication: Tuberous sclerosis complex
  3. RUFINAMIDE [Suspect]
     Active Substance: RUFINAMIDE
     Indication: Epilepsy
     Route: 065
  4. RUFINAMIDE [Suspect]
     Active Substance: RUFINAMIDE
     Indication: Tuberous sclerosis complex
  5. EVEROLIMUS [Suspect]
     Active Substance: EVEROLIMUS
     Indication: Epilepsy
     Dosage: THE DOSE WAS SCHEDULED TO BE INCREASED FURTHER
     Route: 048
  6. EVEROLIMUS [Suspect]
     Active Substance: EVEROLIMUS
     Indication: Tuberous sclerosis complex

REACTIONS (2)
  - Drug resistance [Unknown]
  - Off label use [Unknown]
